FAERS Safety Report 4830733-4 (Version None)
Quarter: 2005Q4

REPORT INFORMATION
  Report Type: 
  Country: None (occurrence: None)
  Receive Date: 20051117
  Receipt Date: 20051107
  Transmission Date: 20060501
  Serious: Yes (Hospitalization, Other)
  Sender: FDA-Public Use
  Company Number: PHEH2005US12254

PATIENT
  Age: 68 Year
  Sex: Female

DRUGS (7)
  1. ZOLEDRONATE [Suspect]
     Indication: OSTEOPOROSIS
     Dosage: UNK, QMO
     Dates: start: 20020615, end: 20021114
  2. AREDIA [Suspect]
     Indication: OSTEOPOROSIS
     Dosage: UNK, QMO
     Dates: start: 20021212, end: 20040610
  3. FEMARA [Concomitant]
     Indication: BREAST CANCER
     Dates: start: 20040319
  4. EFFEXOR [Concomitant]
     Indication: HOT FLUSH
  5. SYNTHROID [Concomitant]
  6. CELEBREX [Concomitant]
  7. CYTOMEL [Concomitant]

REACTIONS (7)
  - ANGIONEUROTIC OEDEMA [None]
  - BONE DISORDER [None]
  - ENDODONTIC PROCEDURE [None]
  - ORAL PAIN [None]
  - OSTEONECROSIS [None]
  - SWOLLEN TONGUE [None]
  - TOOTH EXTRACTION [None]
